FAERS Safety Report 5115593-9 (Version None)
Quarter: 2006Q3

REPORT INFORMATION
  Report Type: 
  Country: None (occurrence: None)
  Receive Date: 20060925
  Receipt Date: 20060917
  Transmission Date: 20061208
  Serious: Yes (Other)
  Sender: FDA-Public Use
  Company Number: 2006111832

PATIENT
  Sex: 0

DRUGS (2)
  1. UNISOM [Suspect]
     Indication: INTENTIONAL SELF-INJURY
     Dosage: ORAL
     Route: 048
  2. ETHANOL (ETHANOL) [Suspect]
     Indication: INTENTIONAL SELF-INJURY
     Dosage: ORAL
     Route: 048

REACTIONS (2)
  - ALCOHOL USE [None]
  - INTENTIONAL SELF-INJURY [None]
